FAERS Safety Report 4322149-4 (Version None)
Quarter: 2004Q1

REPORT INFORMATION
  Report Type: 
  Country: None (occurrence: None)
  Receive Date: 20040319
  Receipt Date: 20040312
  Transmission Date: 20041129
  Serious: Yes (Disabling)
  Sender: FDA-Public Use
  Company Number: HQWYE942907MAR03

PATIENT
  Age: 71 Year
  Sex: Female

DRUGS (2)
  1. DIMETAPP [Suspect]
     Indication: NASOPHARYNGITIS
     Dosage: ORAL
     Route: 048
     Dates: start: 19910101, end: 19910101
  2. CONTACT 12 HOURS (CHLORPHENAMINE MALEATE/PHENYLPROPANOLAMINE HYDROCHLO [Suspect]
     Indication: NASOPHARYNGITIS
     Dosage: ORAL
     Route: 048
     Dates: start: 19910101, end: 19910101

REACTIONS (1)
  - CEREBROVASCULAR ACCIDENT [None]
